FAERS Safety Report 5056155-1 (Version None)
Quarter: 2006Q3

REPORT INFORMATION
  Report Type: 
  Country: None (occurrence: None)
  Receive Date: 20060720
  Receipt Date: 20060710
  Transmission Date: 20061208
  Serious: Yes (Hospitalization)
  Sender: FDA-Public Use
  Company Number: FR-GLAXOSMITHKLINE-B0430696A

PATIENT
  Age: 9 Month
  Sex: Female
  Weight: 9.5 kg

DRUGS (4)
  1. FLIXOTIDE [Suspect]
     Indication: ASTHMA
     Dosage: 50MCG TWICE PER DAY
     Route: 055
  2. VENTOLIN [Concomitant]
     Indication: ASTHMA
     Route: 065
  3. AUGMENTIN '125' [Concomitant]
     Route: 065
     Dates: start: 20060401
  4. RESPIRATORY PHYSIOTHERAPY [Concomitant]

REACTIONS (6)
  - BRONCHITIS [None]
  - CONDITION AGGRAVATED [None]
  - DYSPNOEA [None]
  - PRODUCTIVE COUGH [None]
  - PYREXIA [None]
  - VARICELLA [None]
